FAERS Safety Report 17840815 (Version 1)
Quarter: 2020Q2

REPORT INFORMATION
  Report Type: Spontaneous
  Country: CA (occurrence: CA)
  Receive Date: 20200529
  Receipt Date: 20200529
  Transmission Date: 20200714
  Serious: Yes (Hospitalization)
  Sender: FDA-Public Use
  Company Number: CA-TEVA-2020-CA-1241300

PATIENT
  Age: 21 Year
  Sex: Male

DRUGS (6)
  1. CEPHALEXIN. [Concomitant]
     Active Substance: CEPHALEXIN
  2. IBUPROFEN. [Suspect]
     Active Substance: IBUPROFEN
     Indication: MYALGIA
  3. RABEPRAZOLE [Concomitant]
     Active Substance: RABEPRAZOLE
  4. POLYSPORIN EYE AND EAR DROPS STERILE [Concomitant]
  5. IBUPROFEN. [Suspect]
     Active Substance: IBUPROFEN
     Indication: HEADACHE
  6. IBUPROFEN. [Suspect]
     Active Substance: IBUPROFEN
     Indication: PYREXIA
     Dosage: 800 MILLIGRAM DAILY;
     Route: 048

REACTIONS (15)
  - Drooling [Recovered/Resolved]
  - Mucosal ulceration [Recovered/Resolved]
  - Necrosis [Recovered/Resolved]
  - Inflammation [Recovered/Resolved]
  - Conjunctivitis [Recovered/Resolved]
  - Nausea [Recovered/Resolved]
  - Ocular hyperaemia [Recovered/Resolved]
  - Skin necrosis [Recovered/Resolved]
  - Abdominal pain upper [Recovered/Resolved]
  - Peritonsillar abscess [Recovered/Resolved]
  - Toxic epidermal necrolysis [Recovered/Resolved]
  - Cyanosis [Recovered/Resolved]
  - Discoloured vomit [Recovered/Resolved]
  - Genital ulceration [Recovered/Resolved]
  - Stevens-Johnson syndrome [Recovered/Resolved]
